FAERS Safety Report 25706234 (Version 1)
Quarter: 2025Q3

REPORT INFORMATION
  Report Type: Spontaneous
  Country: US (occurrence: US)
  Receive Date: 20250820
  Receipt Date: 20250820
  Transmission Date: 20251020
  Serious: No
  Sender: LUNDBECK
  Company Number: US-LUNDBECK-DKLU4018336

PATIENT
  Age: 58 Year
  Sex: Female
  Weight: 65.771 kg

DRUGS (1)
  1. VYEPTI [Suspect]
     Active Substance: EPTINEZUMAB-JJMR
     Indication: Migraine
     Dosage: 300 MILLIGRAM
     Route: 041
     Dates: start: 202507

REACTIONS (6)
  - Abdominal pain upper [Recovering/Resolving]
  - Nausea [Unknown]
  - Diarrhoea [Unknown]
  - Feeding disorder [Unknown]
  - Weight decreased [Unknown]
  - Fatigue [Unknown]

NARRATIVE: CASE EVENT DATE: 20250701
